FAERS Safety Report 5311310-8 (Version None)
Quarter: 2007Q2

REPORT INFORMATION
  Report Type: 
  Country: None (occurrence: None)
  Receive Date: 20070430
  Receipt Date: 20070419
  Transmission Date: 20071010
  Serious: Yes (Other)
  Sender: FDA-Public Use
  Company Number: PHBS2007IT07080

PATIENT
  Age: 78 Year
  Sex: Female

DRUGS (7)
  1. ZOMETA [Suspect]
     Route: 042
     Dates: start: 20050101, end: 20061220
  2. TORVAST [Concomitant]
  3. SEQUACOR [Concomitant]
  4. TRIATEC [Concomitant]
  5. ASPIRIN [Concomitant]
  6. LIMPIDEX [Concomitant]
  7. ESKIM [Concomitant]

REACTIONS (1)
  - OSTEONECROSIS [None]
